FAERS Safety Report 15642061 (Version 11)
Quarter: 2022Q1

REPORT INFORMATION
  Report Type: Other
  Country: CA (occurrence: CA)
  Receive Date: 20181121
  Receipt Date: 20220307
  Transmission Date: 20220423
  Serious: Yes (Life-Threatening, Other)
  Sender: FDA-Public Use
  Company Number: CA-002147023-PHHY2017CA063020

PATIENT
  Age: 34 Year
  Sex: Female

DRUGS (12)
  1. XOLAIR [Suspect]
     Active Substance: OMALIZUMAB
     Indication: Chronic spontaneous urticaria
     Route: 058
     Dates: start: 20170228
  2. XOLAIR [Suspect]
     Active Substance: OMALIZUMAB
     Route: 058
     Dates: start: 20170901
  3. XOLAIR [Suspect]
     Active Substance: OMALIZUMAB
     Route: 058
     Dates: start: 20170929
  4. XOLAIR [Suspect]
     Active Substance: OMALIZUMAB
     Route: 058
     Dates: start: 20171222
  5. XOLAIR [Suspect]
     Active Substance: OMALIZUMAB
     Dosage: SOLUTION IN SYRINGE
     Route: 058
     Dates: start: 20181019
  6. XOLAIR [Suspect]
     Active Substance: OMALIZUMAB
     Dosage: SOLUTION IN SYRINGE
     Route: 058
     Dates: start: 20200115
  7. XOLAIR [Suspect]
     Active Substance: OMALIZUMAB
     Dosage: SOLUTION IN SYRINGE
     Route: 058
     Dates: start: 20210416
  8. SINGULAIR [Concomitant]
     Active Substance: MONTELUKAST SODIUM
     Indication: Product used for unknown indication
     Route: 065
     Dates: start: 201608
  9. CETIRIZINE HYDROCHLORIDE [Concomitant]
     Active Substance: CETIRIZINE HYDROCHLORIDE
     Indication: Product used for unknown indication
     Route: 065
     Dates: start: 201611
  10. DOXEPIN [Concomitant]
     Active Substance: DOXEPIN
     Indication: Product used for unknown indication
     Route: 065
     Dates: start: 201612
  11. DICYCLOMINE HYDROCHLORIDE [Concomitant]
     Active Substance: DICYCLOMINE HYDROCHLORIDE
     Indication: Product used for unknown indication
     Route: 065
  12. CIMETIDIN [Concomitant]
     Indication: Product used for unknown indication
     Route: 065

REACTIONS (12)
  - Anaphylactic reaction [Unknown]
  - Hypersensitivity [Unknown]
  - Skin reaction [Unknown]
  - Mast cell activation syndrome [Unknown]
  - Ovarian mass [Unknown]
  - Lip swelling [Recovering/Resolving]
  - Angioedema [Recovering/Resolving]
  - Weight decreased [Unknown]
  - Urticaria [Not Recovered/Not Resolved]
  - Pruritus [Not Recovered/Not Resolved]
  - Product dose omission issue [Unknown]
  - Product use in unapproved indication [Unknown]

NARRATIVE: CASE EVENT DATE: 20170301
